FAERS Safety Report 20347631 (Version 2)
Quarter: 2022Q1

REPORT INFORMATION
  Report Type: Spontaneous
  Country: BR (occurrence: BR)
  Receive Date: 20220118
  Receipt Date: 20220228
  Transmission Date: 20220424
  Serious: Yes (Disabling, Other)
  Sender: FDA-Public Use
  Company Number: BR-SCALL-2022-BR-000006

PATIENT
  Sex: Male
  Weight: 98 kg

DRUGS (9)
  1. DUTASTERIDE\TAMSULOSIN HYDROCHLORIDE [Suspect]
     Active Substance: DUTASTERIDE\TAMSULOSIN HYDROCHLORIDE
     Indication: Product used for unknown indication
     Route: 048
     Dates: start: 2019, end: 2021
  2. TAMSULOSIN [Suspect]
     Active Substance: TAMSULOSIN
     Dosage: 0.4 MG, UNK
     Route: 065
     Dates: start: 202106
  3. ALLOPURINOL [Concomitant]
     Active Substance: ALLOPURINOL
     Route: 065
     Dates: start: 202003
  4. ENALAPRIL [Concomitant]
     Active Substance: ENALAPRIL
     Route: 065
     Dates: start: 202003
  5. AMIODARONE HYDROCHLORIDE [Concomitant]
     Active Substance: AMIODARONE HYDROCHLORIDE
     Route: 065
     Dates: start: 200003
  6. LASIX [Concomitant]
     Active Substance: FUROSEMIDE
     Route: 065
     Dates: start: 200003
  7. MONTELUKAST SODIUM [Concomitant]
     Active Substance: MONTELUKAST SODIUM
     Route: 065
     Dates: start: 200003
  8. ROSUVASTATIN [Concomitant]
     Active Substance: ROSUVASTATIN
     Route: 065
     Dates: start: 200003
  9. BUDESONIDE [Concomitant]
     Active Substance: BUDESONIDE
     Route: 065
     Dates: start: 200003

REACTIONS (9)
  - Erectile dysfunction [Not Recovered/Not Resolved]
  - Sciatica [Not Recovered/Not Resolved]
  - Ejaculation disorder [Recovered/Resolved]
  - Chromaturia [Recovered/Resolved]
  - Urine analysis abnormal [Recovered/Resolved]
  - Peripheral nerve lesion [Unknown]
  - Gait inability [Unknown]
  - Pain [Unknown]
  - Intervertebral disc protrusion [Unknown]
